FAERS Safety Report 6310490-5 (Version None)
Quarter: 2009Q3

REPORT INFORMATION
  Report Type: 
  Country: None (occurrence: None)
  Receive Date: 20090811
  Receipt Date: 20090623
  Transmission Date: 20100115
  Serious: No
  Sender: FDA-Public Use
  Company Number: 1000007001

PATIENT
  Age: 50 Year
  Sex: Female

DRUGS (13)
  1. SAVELLA [Suspect]
     Indication: FIBROMYALGIA
     Dosage: SEE IMAGE
     Route: 048
     Dates: start: 20090501, end: 20090602
  2. SAVELLA [Suspect]
     Indication: FIBROMYALGIA
     Dosage: SEE IMAGE
     Route: 048
     Dates: start: 20090603, end: 20090615
  3. SAVELLA [Suspect]
     Indication: FIBROMYALGIA
     Dosage: SEE IMAGE
     Route: 048
     Dates: start: 20090616, end: 20090621
  4. SAVELLA [Suspect]
     Indication: FIBROMYALGIA
     Dosage: SEE IMAGE
     Route: 048
     Dates: start: 20090622
  5. ESTROGEN [Concomitant]
  6. BENTYL [Concomitant]
  7. SYNTHROID [Concomitant]
  8. OMEPRAZOLE [Concomitant]
  9. HYOSCYAMINE [Concomitant]
  10. DICLOFENAC [Concomitant]
  11. BUPROPION HCL [Concomitant]
  12. NEURONTIN [Concomitant]
  13. AMITRIPTYLINE [Concomitant]

REACTIONS (4)
  - ASTHENIA [None]
  - HYPERHIDROSIS [None]
  - PAIN [None]
  - PALPITATIONS [None]
